FAERS Safety Report 25744396 (Version 1)
Quarter: 2025Q3

REPORT INFORMATION
  Report Type: Spontaneous
  Country: EU (occurrence: EU)
  Receive Date: 20250901
  Receipt Date: 20250901
  Transmission Date: 20251020
  Serious: Yes (Other)
  Sender: Haleon PLC
  Company Number: EU-EMA-20170725-khareevhp-153945885

PATIENT
  Sex: Male

DRUGS (8)
  1. ACETAMINOPHEN [Interacting]
     Active Substance: ACETAMINOPHEN
     Indication: Limb injury
  2. ACETAMINOPHEN [Interacting]
     Active Substance: ACETAMINOPHEN
     Indication: Nerve injury
  3. PREGABALIN [Interacting]
     Active Substance: PREGABALIN
     Indication: Nerve injury
  4. PREGABALIN [Interacting]
     Active Substance: PREGABALIN
     Indication: Limb injury
  5. AMITRIPTYLINE HYDROCHLORIDE [Interacting]
     Active Substance: AMITRIPTYLINE HYDROCHLORIDE
     Indication: Limb injury
  6. AMITRIPTYLINE HYDROCHLORIDE [Interacting]
     Active Substance: AMITRIPTYLINE HYDROCHLORIDE
     Indication: Nerve injury
  7. PREDNISONE [Suspect]
     Active Substance: PREDNISONE
     Indication: Nerve injury
  8. PREDNISONE [Suspect]
     Active Substance: PREDNISONE
     Indication: Limb injury

REACTIONS (9)
  - Blindness transient [Not Recovered/Not Resolved]
  - Eye irritation [Unknown]
  - Visual impairment [Not Recovered/Not Resolved]
  - Astigmatism [Not Recovered/Not Resolved]
  - Eye disorder [Unknown]
  - Colour blindness [Not Recovered/Not Resolved]
  - Drug interaction [Unknown]
  - Vision blurred [Unknown]
  - Colour blindness acquired [Not Recovered/Not Resolved]
